FAERS Safety Report 6049505-0 (Version None)
Quarter: 2009Q1

REPORT INFORMATION
  Report Type: 
  Country: None (occurrence: None)
  Receive Date: 20090121
  Receipt Date: 20090109
  Transmission Date: 20090719
  Serious: Yes (Hospitalization, Other)
  Sender: FDA-Public Use
  Company Number: 200911006GPV

PATIENT
  Age: 63 Year
  Sex: Female

DRUGS (8)
  1. FLUDARA [Suspect]
     Indication: CHRONIC LYMPHOCYTIC LEUKAEMIA
     Dosage: 40 MG
     Route: 048
     Dates: start: 20080317, end: 20080909
  2. RITUXAN [Suspect]
     Indication: CHRONIC LYMPHOCYTIC LEUKAEMIA
     Dosage: 700 MG
     Route: 041
     Dates: start: 20080319, end: 20080909
  3. CYCLOPHOSPHAMIDE [Suspect]
     Indication: CHRONIC LYMPHOCYTIC LEUKAEMIA
     Dosage: 250 MG
     Route: 048
     Dates: start: 20080317, end: 20080909
  4. VALACYCLOVIR HCL [Concomitant]
  5. BACTRIM [Concomitant]
  6. BIPRETERAX [Concomitant]
  7. MONOTILDIEM (DILTIAZEM) [Concomitant]
  8. FOLIC ACID [Concomitant]

REACTIONS (3)
  - ERYSIPELAS [None]
  - HEPATITIS [None]
  - PANCYTOPENIA [None]
